FAERS Safety Report 8938302 (Version 1)
Quarter: 2012Q4

REPORT INFORMATION
  Report Type: 
  Country: US (occurrence: US)
  Receive Date: 20121203
  Receipt Date: 20121203
  Transmission Date: 20130627
  Serious: Yes (Hospitalization)
  Sender: FDA-Public Use
  Company Number: US-BAYER-2012-123855

PATIENT
  Age: 52 Year
  Sex: Female

DRUGS (1)
  1. NEXAVAR 200 MG TABLET [Suspect]
     Indication: PANCREAS NEOPLASM MALIGNANT
     Dosage: 200 mg, BID
     Route: 048
     Dates: start: 20121110, end: 20121110

REACTIONS (2)
  - Unevaluable event [None]
  - Off label use [None]
